FAERS Safety Report 19149313 (Version 2)
Quarter: 2021Q2

REPORT INFORMATION
  Report Type: Spontaneous
  Country: FR (occurrence: FR)
  Receive Date: 20210417
  Receipt Date: 20210629
  Transmission Date: 20210717
  Serious: Yes (Other)
  Sender: FDA-Public Use
  Company Number: FR-AUROBINDO-AUR-APL-2021-014872

PATIENT
  Age: 40 Year
  Sex: Female

DRUGS (3)
  1. TRAMADOL PROLONGED RELEASE TABLET [Suspect]
     Active Substance: TRAMADOL
     Indication: BLADDER PAIN
     Dosage: UNK
     Route: 065
  2. TRAMADOL TABLET [Suspect]
     Active Substance: TRAMADOL
     Indication: BLADDER PAIN
     Dosage: 12 DOSAGE FORM, ONCE A DAY
     Route: 065
  3. TRAMADOL 50MG [Suspect]
     Active Substance: TRAMADOL
     Indication: BLADDER PAIN
     Dosage: TRAMADOL 50 MG EVERY HOUR, I.E. 10 TO 12 PER DAY
     Route: 065
     Dates: start: 2013

REACTIONS (7)
  - Intentional overdose [Unknown]
  - Overdose [Recovered/Resolved]
  - Intentional product misuse [Recovered/Resolved]
  - Stillbirth [Unknown]
  - Hyperaesthesia [Recovered/Resolved]
  - Drug dependence [Recovering/Resolving]
  - Maternal exposure during pregnancy [Recovered/Resolved]
